FAERS Safety Report 5747885-4 (Version None)
Quarter: 2008Q2

REPORT INFORMATION
  Report Type: 
  Country: None (occurrence: None)
  Receive Date: 20080523
  Receipt Date: 20080521
  Transmission Date: 20081010
  Serious: Yes (Hospitalization)
  Sender: FDA-Public Use
  Company Number: FR-BRISTOL-MYERS SQUIBB COMPANY-14200455

PATIENT
  Age: 70 Year
  Sex: Female

DRUGS (13)
  1. BICNU PWDR FOR INJ [Suspect]
     Indication: LYMPHOMA
     Dosage: FROM 01-SEP-2008 TO 04-JAN-2008; 100MG/M2 AT DAY 3
     Route: 042
     Dates: start: 20080104, end: 20080104
  2. ETOPOSIDE [Suspect]
     Indication: LYMPHOMA
     Dosage: FROM 01-SEP-2008 TO 04-JAN-2008; AT DAY 2
     Route: 042
     Dates: start: 20080104, end: 20080104
  3. METHOTREXATE [Suspect]
     Indication: LYMPHOMA
     Dosage: FROM 01-SEP-2008 TO 04-JAN-2008;
     Route: 042
     Dates: start: 20080104, end: 20080104
  4. METHOTREXATE [Suspect]
     Route: 037
     Dates: start: 20080104, end: 20080104
  5. SOLU-MEDROL [Suspect]
     Indication: LYMPHOMA
     Dosage: FROM 01-SEP-2008 TO 04-JAN-2008; FROM DAY 1 TO DAY 5
     Route: 042
     Dates: start: 20080104, end: 20080104
  6. ARACYTINE [Suspect]
     Indication: LYMPHOMA
     Dosage: FROM 01-SEP-2008 TO 04-JAN-2008;
     Route: 037
     Dates: start: 20080104, end: 20080104
  7. DEPO-MEDROL [Suspect]
     Indication: LYMPHOMA
     Dosage: FROM 01-SEP-2008 TO 04-JAN-2008
     Route: 037
     Dates: start: 20080104, end: 20080104
  8. ZOPHREN [Suspect]
     Indication: LYMPHOMA
     Dosage: FROM 01-SEP-2008 TO 04-JAN-2008
     Route: 048
     Dates: start: 20080104, end: 20080104
  9. BACTRIM [Suspect]
     Indication: LYMPHOMA
     Dosage: FROM 01-SEP-2008 TO 04-JAN-2008
     Dates: start: 20080104, end: 20080104
  10. MOPRAL [Concomitant]
  11. PAROXETINE HCL [Concomitant]
  12. FOLIC ACID [Concomitant]
  13. PRIMPERAN TAB [Concomitant]

REACTIONS (3)
  - CRANIAL NERVE PARALYSIS [None]
  - DYSPHAGIA [None]
  - EYELID PTOSIS [None]
